FAERS Safety Report 9427460 (Version 1)
Quarter: 2013Q3

REPORT INFORMATION
  Report Type: Spontaneous
  Country: US (occurrence: US)
  Receive Date: 20130730
  Receipt Date: 20130730
  Transmission Date: 20140515
  Serious: No
  Sender: FDA-Public Use
  Company Number: US-ABBOTT-12P-163-0974504-00

PATIENT
  Age: 73 Year
  Sex: Female
  Weight: 71.73 kg

DRUGS (9)
  1. NIASPAN (COATED) 500MG [Suspect]
     Indication: BLOOD CHOLESTEROL
     Dates: start: 20120823, end: 20120826
  2. AVAPRO [Concomitant]
     Indication: BLOOD PRESSURE
  3. COREG [Concomitant]
     Indication: HEART RATE DECREASED
  4. HYDROCHLOROTHIAZIDE [Concomitant]
     Indication: BLOOD PRESSURE
  5. PLAVIX [Concomitant]
     Indication: ANTICOAGULANT THERAPY
  6. PRILOSEC [Concomitant]
     Indication: GASTROOESOPHAGEAL REFLUX DISEASE
  7. CELEXA [Concomitant]
     Indication: NERVOUS SYSTEM DISORDER
  8. MOBIC [Concomitant]
     Indication: ARTHRITIS
  9. ASPIRIN [Concomitant]
     Indication: PRODUCT USED FOR UNKNOWN INDICATION
     Dosage: TOOK WITH NIASPAN

REACTIONS (5)
  - Pain [Not Recovered/Not Resolved]
  - Skin burning sensation [Not Recovered/Not Resolved]
  - Pruritus [Not Recovered/Not Resolved]
  - Erythema [Not Recovered/Not Resolved]
  - Flatulence [Not Recovered/Not Resolved]
